FAERS Safety Report 8541312-X (Version None)
Quarter: 2012Q3

REPORT INFORMATION
  Report Type: 
  Country: None (occurrence: None)
  Receive Date: 20120726
  Receipt Date: 20110920
  Transmission Date: 20120928
  Serious: No
  Sender: FDA-Public Use
  Company Number: US-ASTRAZENECA-2011SE56809

PATIENT

DRUGS (2)
  1. FLUOXETINE HCL [Concomitant]
  2. SEROQUEL [Suspect]
     Route: 048

REACTIONS (5)
  - OBSESSIVE-COMPULSIVE DISORDER [None]
  - ATTENTION DEFICIT/HYPERACTIVITY DISORDER [None]
  - DEPRESSION [None]
  - IRON DEFICIENCY ANAEMIA [None]
  - ALOPECIA AREATA [None]
